FAERS Safety Report 7425693-6 (Version None)
Quarter: 2011Q2

REPORT INFORMATION
  Report Type: 
  Country: None (occurrence: None)
  Receive Date: 20110420
  Receipt Date: 20110406
  Transmission Date: 20111010
  Serious: Yes (Hospitalization, Other)
  Sender: FDA-Public Use
  Company Number: US-ELI_LILLY_AND_COMPANY-US201005002328

PATIENT
  Sex: Female
  Weight: 71.655 kg

DRUGS (26)
  1. MAGNESIUM OXIDE [Concomitant]
     Indication: MUSCLE SPASMS
     Dosage: 400 MG, DAILY (1/D)
     Route: 048
  2. HYDROCODONE BITARTRATE AND ACETAMINOPHEN [Concomitant]
     Dosage: UNK, AS NEEDED
  3. LORTAB [Concomitant]
     Indication: PAIN
     Dosage: 1 D/F 5MG-500MG, AS NEEDED (EVERY 4-6HRS)
     Route: 048
  4. MAGNESIUM OXIDE [Concomitant]
     Dosage: 4 MG, DAILY (1/D)
  5. LASIX [Concomitant]
     Dosage: 20 MG, DAILY (1/D)
     Route: 048
  6. PRILOSEC [Concomitant]
     Dosage: 20 MG, DAILY (1/D)
  7. CENTRUM SILVER [Concomitant]
     Dosage: UNK, DAILY (1/D)
  8. TRIAMCINOLONE ACETONIDE [Concomitant]
     Dosage: 0.1 %, DAILY (1/D)
     Route: 061
  9. FORTEO [Suspect]
     Dosage: UNK, DAILY (1/D)
  10. FORTEO [Suspect]
     Dosage: 20 UG, DAILY (1/D)
  11. BENICAR [Concomitant]
     Dosage: 40 MG, DAILY (1/D)
     Route: 048
  12. KLOR-CON [Concomitant]
     Dosage: 10 MG, 2/D
  13. NITROGLYCERIN [Concomitant]
     Dosage: 0.3 MG, AS NEEDED
  14. PLAVIX [Concomitant]
     Dosage: 75 MG, DAILY (1/D)
     Route: 048
  15. COREG [Concomitant]
     Dosage: 6.25 MG, 2/D
     Route: 048
  16. CALTRATE 600 + D [Concomitant]
     Dosage: 1 D/F, 2/D
  17. CALTRATE 600 + D [Concomitant]
     Dosage: 2 D/F, 2/D
  18. FORTEO [Suspect]
     Indication: OSTEOPOROSIS
     Dosage: 20 UG, DAILY (1/D)
     Route: 065
     Dates: start: 20100505
  19. COREG [Concomitant]
     Dosage: UNK, DAILY (1/D)
  20. VYTORIN [Concomitant]
     Dosage: 1 D/F, DAILY (1/D)F 10-40MG
     Route: 048
  21. PREDNISONE [Concomitant]
     Dosage: 1 MG, DAILY (1/D)
     Route: 048
  22. FLEXERIL [Concomitant]
     Dosage: 5 MG, 3/D
     Route: 048
  23. ASPIRIN [Concomitant]
     Dosage: 1 D/F, DAILY (1/D)
     Route: 048
  24. MIRAPEX [Concomitant]
     Indication: RESTLESS LEGS SYNDROME
     Dosage: 0.5 MG, DAILY (1/D)
     Route: 048
  25. AMITIZA [Concomitant]
     Dosage: 24 MG, 2/D
     Route: 048
  26. AVAPRO [Concomitant]
     Dosage: 300 MG, DAILY (1/D)
     Route: 048

REACTIONS (15)
  - NAUSEA [None]
  - FEELING ABNORMAL [None]
  - DYSPNOEA [None]
  - INTERVERTEBRAL DISC DEGENERATION [None]
  - OEDEMA PERIPHERAL [None]
  - DIZZINESS [None]
  - HYPOTENSION [None]
  - RECTAL HAEMORRHAGE [None]
  - GASTRIC ULCER HAEMORRHAGE [None]
  - HERNIA [None]
  - FATIGUE [None]
  - MUSCULAR WEAKNESS [None]
  - ASTHENIA [None]
  - CORONARY ARTERY DISEASE [None]
  - BACK PAIN [None]
